FAERS Safety Report 23916213 (Version 1)
Quarter: 2024Q2

REPORT INFORMATION
  Report Type: Spontaneous
  Country: GB (occurrence: None)
  Receive Date: 20240529
  Receipt Date: 20240529
  Transmission Date: 20240716
  Serious: Yes (Hospitalization)
  Sender: FDA-Public Use
  Company Number: 2024A123516

PATIENT
  Age: 66 Year
  Sex: Male

DRUGS (6)
  1. OMEPRAZOLE [Suspect]
     Active Substance: DONEPEZIL HYDROCHLORIDE\OMEPRAZOLE\OMEPRAZOLE MAGNESIUM
  2. NAPROXEN [Suspect]
     Active Substance: NAPROXEN
     Dosage: 2 TABLET/DAY
  3. INDAPAMIDE [Suspect]
     Active Substance: INDAPAMIDE
     Dosage: MORNING
  4. ALLOPURINOL [Suspect]
     Active Substance: ALLOPURINOL
     Dosage: AFTER 1 MONTH INCREASE TO 200MG DAILY
  5. RAMIPRIL [Suspect]
     Active Substance: RAMIPRIL
  6. SIMVASTATIN [Concomitant]
     Active Substance: SIMVASTATIN
     Dosage: AT NIGHT

REACTIONS (4)
  - Dizziness [Recovered/Resolved]
  - Syncope [Recovered/Resolved]
  - Fall [Recovered/Resolved]
  - Hypotension [Unknown]

NARRATIVE: CASE EVENT DATE: 20240304
